FAERS Safety Report 10593661 (Version 1)
Quarter: 2014Q4

REPORT INFORMATION
  Report Type: Spontaneous
  Country: DK (occurrence: DE)
  Receive Date: 20141119
  Receipt Date: 20141119
  Transmission Date: 20150529
  Serious: Yes (Congenital Anomaly, Other)
  Sender: FDA-Public Use
  Company Number: DE-FRI-1000072484

PATIENT
  Age: 0 Year
  Sex: Female
  Weight: 1.8 kg

DRUGS (4)
  1. FEMIBION [Concomitant]
     Active Substance: VITAMINS
     Route: 064
  2. CITALOPRAM [Suspect]
     Active Substance: CITALOPRAM HYDROBROMIDE
     Dosage: 15 MG
     Route: 064
     Dates: start: 20130125, end: 20130913
  3. PANTOPRAZOLE [Suspect]
     Active Substance: PANTOPRAZOLE SODIUM
     Dosage: 20 MG
     Route: 064
  4. PANTOPRAZOLE [Suspect]
     Active Substance: PANTOPRAZOLE SODIUM
     Dosage: 20 MG
     Route: 064

REACTIONS (5)
  - Foetal exposure during pregnancy [Not Recovered/Not Resolved]
  - Feeding disorder [Recovered/Resolved]
  - Atrial septal defect [Not Recovered/Not Resolved]
  - Neonatal respiratory distress syndrome [Recovered/Resolved]
  - Premature baby [Recovering/Resolving]

NARRATIVE: CASE EVENT DATE: 20130125
